FAERS Safety Report 24791451 (Version 5)
Quarter: 2025Q1

REPORT INFORMATION
  Report Type: Spontaneous
  Country: PT (occurrence: PT)
  Receive Date: 20241231
  Receipt Date: 20250120
  Transmission Date: 20250409
  Serious: Yes (Disabling)
  Sender: ABBVIE
  Company Number: None

PATIENT
  Age: 38 Year
  Sex: Male
  Weight: 79 kg

DRUGS (1)
  1. BOTOX [Suspect]
     Active Substance: ONABOTULINUMTOXINA
     Indication: Migraine
     Route: 030
     Dates: start: 20241129, end: 20241129

REACTIONS (5)
  - Insomnia [Recovered/Resolved]
  - Muscular weakness [Not Recovered/Not Resolved]
  - Anxiety [Recovering/Resolving]
  - Tachycardia [Recovering/Resolving]
  - Off label use [Unknown]

NARRATIVE: CASE EVENT DATE: 20241129
